FAERS Safety Report 23517257 (Version 1)
Quarter: 2024Q1

REPORT INFORMATION
  Report Type: Spontaneous
  Country: CA (occurrence: CA)
  Receive Date: 20240213
  Receipt Date: 20240213
  Transmission Date: 20240409
  Serious: Yes (Life-Threatening)
  Sender: FDA-Public Use
  Company Number: CA-TEVA-VS-3153698

PATIENT
  Age: 86 Year
  Sex: Female

DRUGS (1)
  1. DILTIAZEM HYDROCHLORIDE [Suspect]
     Active Substance: DILTIAZEM HYDROCHLORIDE
     Dosage: DOSE FORM: CAPSULE, EXTENDED RELEASE
     Route: 065

REACTIONS (2)
  - Bradycardia [Unknown]
  - Cardiogenic shock [Unknown]
